FAERS Safety Report 5014787-0 (Version None)
Quarter: 2006Q2

REPORT INFORMATION
  Report Type: 
  Country: None (occurrence: None)
  Receive Date: 20060531
  Receipt Date: 20060524
  Transmission Date: 20061013
  Serious: Yes (Other)
  Sender: FDA-Public Use
  Company Number: US-BRISTOL-MYERS SQUIBB COMPANY-13389713

PATIENT
  Age: 32 Year
  Sex: Female

DRUGS (2)
  1. TEQUIN [Suspect]
     Indication: SINUS DISORDER
  2. BACTRIM DS [Concomitant]

REACTIONS (16)
  - ANOREXIA [None]
  - CARDIAC DISORDER [None]
  - CHEST PAIN [None]
  - CHILLS [None]
  - CHOKING [None]
  - DIZZINESS [None]
  - DYSPHAGIA [None]
  - EYE PAIN [None]
  - HEADACHE [None]
  - HUNGER [None]
  - HYPOAESTHESIA [None]
  - PAIN [None]
  - PARAESTHESIA [None]
  - TOOTHACHE [None]
  - TREMOR [None]
  - VISION BLURRED [None]
